FAERS Safety Report 10846279 (Version 1)
Quarter: 2015Q1

REPORT INFORMATION
  Report Type: Report from Study
  Country: US (occurrence: US)
  Receive Date: 20150220
  Receipt Date: 20150220
  Transmission Date: 20150721
  Serious: Yes (Other)
  Sender: FDA-Public Use
  Company Number: US-ABBVIE-15K-163-1329582-00

PATIENT
  Age: 56 Year
  Sex: Female

DRUGS (1)
  1. HUMIRA [Suspect]
     Active Substance: ADALIMUMAB
     Indication: CROHN^S DISEASE
     Route: 065
     Dates: start: 20141217, end: 20141217

REACTIONS (4)
  - Limb discomfort [Unknown]
  - Cardiac failure congestive [Unknown]
  - Myocardial infarction [Unknown]
  - Gait disturbance [Unknown]

NARRATIVE: CASE EVENT DATE: 201412
